FAERS Safety Report 8633169 (Version 3)
Quarter: 2012Q4

REPORT INFORMATION
  Report Type: 
  Country: US (occurrence: US)
  Receive Date: 20120625
  Receipt Date: 20121008
  Transmission Date: 20130627
  Serious: Yes (Hospitalization)
  Sender: FDA-Public Use
  Company Number: US-PURDUE-USA-2012-0088911

PATIENT
  Sex: Female
  Weight: 102.95 kg

DRUGS (4)
  1. OXYCONTIN (NDA 22-272) [Suspect]
     Indication: PAIN
     Dosage: 60 mg, tid
     Route: 048
  2. OXYCONTIN (NDA 22-272) [Suspect]
     Dosage: 60 mg, 1 tablet every 8 hours
     Route: 048
  3. VENLAFAXINE [Suspect]
     Indication: PRODUCT USED FOR UNKNOWN INDICATION
     Dosage: unknown
  4. WARFARIN [Suspect]
     Indication: PRODUCT USED FOR UNKNOWN INDICATION
     Dosage: unknown

REACTIONS (2)
  - International normalised ratio increased [Recovered/Resolved]
  - Limb discomfort [Unknown]
